FAERS Safety Report 11322808 (Version 2)
Quarter: 2015Q3

REPORT INFORMATION
  Report Type: Spontaneous
  Country: BR (occurrence: BR)
  Receive Date: 20150730
  Receipt Date: 20150731
  Transmission Date: 20151125
  Serious: Yes (Other)
  Sender: FDA-Public Use
  Company Number: PHHY2015BR020685

PATIENT
  Sex: Male
  Weight: 86 kg

DRUGS (7)
  1. CARBAMAZEPINE. [Suspect]
     Active Substance: CARBAMAZEPINE
     Indication: PARAESTHESIA
     Dosage: 200 MG, BID
     Route: 065
     Dates: start: 201502
  2. ACETYLSALICYLIC ACID [Concomitant]
     Active Substance: ASPIRIN
     Indication: PRODUCT USED FOR UNKNOWN INDICATION
     Dosage: 100 MG, QD
     Route: 065
  3. SINVASTACOR [Suspect]
     Active Substance: SIMVASTATIN
     Dosage: 40 MG, UNK
     Route: 065
     Dates: start: 2014
  4. SINVASTACOR [Suspect]
     Active Substance: SIMVASTATIN
     Indication: BLOOD CHOLESTEROL INCREASED
     Dosage: 40 MG, QD
     Route: 048
     Dates: start: 200701
  5. CAPTOPRIL. [Concomitant]
     Active Substance: CAPTOPRIL
     Indication: PRODUCT USED FOR UNKNOWN INDICATION
     Dosage: 25 MG, UNK
     Route: 065
  6. CLOPIDOGREL [Suspect]
     Active Substance: CLOPIDOGREL BISULFATE
     Indication: SINUSITIS
     Dosage: 75 MG, QD
     Route: 048
  7. SINVASTACOR [Suspect]
     Active Substance: SIMVASTATIN
     Indication: ISCHAEMIA
     Dosage: 20 MG, UNK
     Route: 065
     Dates: start: 2007, end: 2014

REACTIONS (8)
  - Muscular weakness [Unknown]
  - Wheelchair user [Recovered/Resolved]
  - Pain in extremity [Recovered/Resolved]
  - Arthralgia [Unknown]
  - Paraesthesia [Unknown]
  - Hypoaesthesia [Unknown]
  - Malaise [Unknown]
  - Muscle spasms [Unknown]
